FAERS Safety Report 4938699-3 (Version None)
Quarter: 2006Q1

REPORT INFORMATION
  Report Type: 
  Country: None (occurrence: None)
  Receive Date: 20060127
  Receipt Date: 20051024
  Transmission Date: 20060701
  Serious: Yes (Other)
  Sender: FDA-Public Use
  Company Number: 2005146270

PATIENT
  Age: 38 Year
  Sex: Male
  Weight: 65.7716 kg

DRUGS (10)
  1. LYRICA [Suspect]
     Indication: NEURITIS
     Dosage: 150 MG (75 MG,2 IN 1D)
     Dates: start: 20051023
  2. BACLOFEN [Concomitant]
  3. OXYCONTIN [Concomitant]
  4. PERCOCET [Concomitant]
  5. DIAZEPAM [Concomitant]
  6. XANAX [Concomitant]
  7. NORVASC [Concomitant]
  8. AMOXICILLIN [Concomitant]
  9. EFFEXOR [Concomitant]
  10. NAPRONTAG FLEX (CARISOPRODOL, NAPROXEN) [Concomitant]

REACTIONS (5)
  - ABNORMAL BEHAVIOUR [None]
  - ASTHENIA [None]
  - DIPLOPIA [None]
  - DIZZINESS [None]
  - NAUSEA [None]
